FAERS Safety Report 17015813 (Version 1)
Quarter: 2019Q4

REPORT INFORMATION
  Report Type: Spontaneous
  Country: US (occurrence: US)
  Receive Date: 20191111
  Receipt Date: 20191111
  Transmission Date: 20200122
  Serious: Yes (Other)
  Sender: FDA-Public Use
  Company Number: US-ELI_LILLY_AND_COMPANY-US201910015913

PATIENT
  Age: 59 Year
  Sex: Male

DRUGS (10)
  1. VIAGRA [Suspect]
     Active Substance: SILDENAFIL CITRATE
     Dosage: 100 MG, 2/W
     Route: 065
     Dates: start: 20050712, end: 200703
  2. CIALIS [Suspect]
     Active Substance: TADALAFIL
     Indication: ERECTILE DYSFUNCTION
     Dosage: 20 MG, 2/W
     Route: 065
     Dates: start: 201301, end: 201312
  3. CIALIS [Suspect]
     Active Substance: TADALAFIL
     Dosage: 20 MG, 2/W
     Route: 065
     Dates: start: 201312, end: 201402
  4. VIAGRA [Suspect]
     Active Substance: SILDENAFIL CITRATE
     Dosage: 100 MG, 2/W
     Route: 065
     Dates: start: 200711, end: 200808
  5. VIAGRA [Suspect]
     Active Substance: SILDENAFIL CITRATE
     Dosage: 100 MG, 2/W
     Route: 065
     Dates: start: 201105, end: 201112
  6. VIAGRA [Suspect]
     Active Substance: SILDENAFIL CITRATE
     Dosage: 100 MG, 2/W
     Route: 065
     Dates: start: 201201, end: 201212
  7. VIAGRA [Suspect]
     Active Substance: SILDENAFIL CITRATE
     Dosage: 100 MG, 2/W
     Route: 065
     Dates: start: 201405, end: 201602
  8. VIAGRA [Suspect]
     Active Substance: SILDENAFIL CITRATE
     Indication: ERECTILE DYSFUNCTION
     Dosage: 100 MG, 2/W
     Dates: start: 20010913, end: 200506
  9. VIAGRA [Suspect]
     Active Substance: SILDENAFIL CITRATE
     Dosage: 100 MG, 2/W
     Route: 065
     Dates: start: 200908, end: 201105
  10. CIALIS [Suspect]
     Active Substance: TADALAFIL
     Dosage: 20 MG, 2/W
     Route: 065
     Dates: start: 20140227, end: 201409

REACTIONS (1)
  - Nodular melanoma [Unknown]

NARRATIVE: CASE EVENT DATE: 200612
